FAERS Safety Report 4608325-1 (Version None)
Quarter: 2005Q2

REPORT INFORMATION
  Report Type: 
  Country: None (occurrence: None)
  Receive Date: 20050301
  Receipt Date: 20040413
  Transmission Date: 20051028
  Serious: Yes (Other)
  Sender: FDA-Public Use
  Company Number: BDI-006036

PATIENT
  Age: 51 Year
  Sex: Female

DRUGS (4)
  1. ISOVUE-300 [Suspect]
     Indication: ANGIOGRAM
     Dosage: 150 ML ONCE IV
     Route: 042
     Dates: start: 20040412, end: 20040412
  2. ISOVUE-300 [Suspect]
     Indication: COMPUTERISED TOMOGRAM
     Dosage: 150 ML ONCE IV
     Route: 042
     Dates: start: 20040412, end: 20040412
  3. ISOVUE-300 [Suspect]
     Indication: COMPUTERISED TOMOGRAM ABDOMEN
     Dosage: 150 ML ONCE IV
     Route: 042
     Dates: start: 20040412, end: 20040412
  4. ISOVUE-300 [Suspect]
     Indication: DYSPNOEA
     Dosage: 150 ML ONCE IV
     Route: 042
     Dates: start: 20040412, end: 20040412

REACTIONS (5)
  - COUGH [None]
  - EYE PRURITUS [None]
  - LACRIMATION INCREASED [None]
  - PRURITUS [None]
  - URTICARIA [None]
